FAERS Safety Report 17293193 (Version 5)
Quarter: 2020Q4

REPORT INFORMATION
  Report Type: Report from Study
  Country: US (occurrence: US)
  Receive Date: 20200121
  Receipt Date: 20201016
  Transmission Date: 20210113
  Serious: Yes (Other)
  Sender: FDA-Public Use
  Company Number: NVSC2020US009929

PATIENT
  Age: 47 Year
  Sex: Female

DRUGS (1)
  1. COSENTYX [Suspect]
     Active Substance: SECUKINUMAB
     Indication: ANKYLOSING SPONDYLITIS
     Dosage: UNK
     Route: 065

REACTIONS (8)
  - Fatigue [Unknown]
  - Neoplasm malignant [Unknown]
  - Limb discomfort [Unknown]
  - Asthenia [Unknown]
  - Device breakage [Unknown]
  - Procedural pain [Unknown]
  - Incorrect dose administered [Unknown]
  - Injection site pain [Unknown]
